FAERS Safety Report 9671841 (Version 1)
Quarter: 2013Q4

REPORT INFORMATION
  Report Type: Report from Study
  Country: ES (occurrence: ES)
  Receive Date: 20131106
  Receipt Date: 20131106
  Transmission Date: 20140711
  Serious: Yes (Other)
  Sender: FDA-Public Use
  Company Number: ES-CELGENEUS-144-50794-13104440

PATIENT
  Age: 76 Year
  Sex: 0

DRUGS (2)
  1. VIDAZA [Suspect]
     Indication: MYELODYSPLASTIC SYNDROME
     Route: 065
  2. VIDAZA [Suspect]
     Indication: ACUTE MYELOID LEUKAEMIA

REACTIONS (2)
  - Diabetes mellitus [Unknown]
  - Acute myeloid leukaemia [Unknown]
